FAERS Safety Report 8587166-7 (Version None)
Quarter: 2012Q3

REPORT INFORMATION
  Report Type: 
  Country: None (occurrence: None)
  Receive Date: 20120810
  Receipt Date: 20120806
  Transmission Date: 20120928
  Serious: Yes (Other)
  Sender: FDA-Public Use
  Company Number: JP-VERTEX PHARMACEUTICALS INC.-AE-2012-008340

PATIENT
  Age: 67 Year
  Sex: Female

DRUGS (8)
  1. PRIMPERAN TAB [Concomitant]
     Route: 048
     Dates: start: 20120326
  2. GASMOTIN [Concomitant]
     Route: 048
     Dates: start: 20120502, end: 20120530
  3. PEGINTERFERON ALFA-2B [Concomitant]
     Route: 058
     Dates: start: 20120502, end: 20120517
  4. TELAVIC (TELAPREVIR) [Suspect]
     Indication: HEPATITIS C
     Route: 048
     Dates: start: 20120314, end: 20120517
  5. REBETOL [Concomitant]
     Indication: HEPATITIS C
     Route: 048
     Dates: start: 20120314, end: 20120425
  6. REBETOL [Concomitant]
     Route: 048
     Dates: start: 20120426, end: 20120524
  7. PEGINTERFERON ALFA-2B [Concomitant]
     Indication: HEPATITIS C
     Route: 051
     Dates: start: 20120314
  8. ALLOPURINOL [Concomitant]
     Route: 048
     Dates: start: 20120319

REACTIONS (3)
  - WEIGHT DECREASED [None]
  - HAEMOGLOBIN DECREASED [None]
  - DECREASED APPETITE [None]
